FAERS Safety Report 9644834 (Version 1)
Quarter: 2013Q4

REPORT INFORMATION
  Report Type: Spontaneous
  Country: US (occurrence: US)
  Receive Date: 20131025
  Receipt Date: 20131025
  Transmission Date: 20140711
  Serious: No
  Sender: FDA-Public Use
  Company Number: US-PFIZER INC-2013302305

PATIENT
  Age: 69 Year
  Sex: Male
  Weight: 74.83 kg

DRUGS (5)
  1. LYRICA [Suspect]
     Indication: SPINAL DISORDER
     Dosage: 75 MG, UNK
     Dates: end: 20130601
  2. LYRICA [Suspect]
     Dosage: 100 MG, 3X/DAY
     Dates: start: 20130602
  3. GABAPENTIN [Suspect]
     Indication: SPINAL DISORDER
     Dosage: UNK
     Dates: start: 20130307, end: 20130602
  4. LISINOPRIL [Concomitant]
     Indication: HYPERTENSION
     Dosage: UNK
  5. DICLOFENAC [Concomitant]
     Dosage: UNK

REACTIONS (11)
  - Oedema peripheral [Unknown]
  - Fatigue [Unknown]
  - Memory impairment [Unknown]
  - Tenderness [Unknown]
  - Laziness [Unknown]
  - Irritability [Unknown]
  - Anxiety [Unknown]
  - Paraesthesia [Unknown]
  - Muscle spasms [Unknown]
  - Somnolence [Unknown]
  - Vision blurred [Unknown]
